FAERS Safety Report 7325384-6 (Version None)
Quarter: 2011Q1

REPORT INFORMATION
  Report Type: 
  Country: None (occurrence: None)
  Receive Date: 20110218
  Receipt Date: 20110208
  Transmission Date: 20110831
  Serious: Yes (Hospitalization, Other)
  Sender: FDA-Public Use
  Company Number: 20109462

PATIENT
  Age: 29 Year
  Sex: Female

DRUGS (1)
  1. GABALON INTRATHECAL(BACLOFEN INJECTION) [Suspect]
     Indication: MUSCLE SPASTICITY
     Dosage: DAILY, INTRATHECAL - SEE B5
     Route: 037

REACTIONS (3)
  - MUSCLE SPASTICITY [None]
  - DEVICE DISLOCATION [None]
  - HICCUPS [None]
